FAERS Safety Report 14875168 (Version 4)
Quarter: 2018Q2

REPORT INFORMATION
  Report Type: Spontaneous
  Country: US (occurrence: US)
  Receive Date: 20180510
  Receipt Date: 20180605
  Transmission Date: 20180711
  Serious: No
  Sender: FDA-Public Use
  Company Number: US-PFIZER INC-2018183927

PATIENT
  Age: 66 Year
  Sex: Female
  Weight: 65.31 kg

DRUGS (2)
  1. ACETYLCYSTEINE. [Suspect]
     Active Substance: ACETYLCYSTEINE
     Indication: INCREASED VISCOSITY OF UPPER RESPIRATORY SECRETION
     Dosage: 6 ML, AS NEEDED (TWICE 3ML IN HER NEBULIZER EVERY 8 HOURS)
     Route: 055
     Dates: start: 20180502
  2. ACETYLCYSTEINE. [Suspect]
     Active Substance: ACETYLCYSTEINE
     Indication: CHRONIC OBSTRUCTIVE PULMONARY DISEASE
     Dosage: UNK [EACH OF THE THREE BOTTLES CONTAINED 30ML EACH]

REACTIONS (6)
  - Poor quality drug administered [Unknown]
  - Product odour abnormal [Unknown]
  - Malaise [Not Recovered/Not Resolved]
  - Dyspnoea [Unknown]
  - Speech disorder [Unknown]
  - Irritability [Unknown]

NARRATIVE: CASE EVENT DATE: 2018
